FAERS Safety Report 22953033 (Version 3)
Quarter: 2023Q4

REPORT INFORMATION
  Report Type: Spontaneous
  Country: US (occurrence: US)
  Receive Date: 20230918
  Receipt Date: 20231220
  Transmission Date: 20240110
  Serious: Yes (Other)
  Sender: FDA-Public Use
  Company Number: US-REGENERON PHARMACEUTICALS, INC.-2023-113331

PATIENT
  Sex: Male

DRUGS (1)
  1. EYLEA [Suspect]
     Active Substance: AFLIBERCEPT
     Indication: Neovascular age-related macular degeneration
     Dosage: 2 MG, EVERY 4 WEEKS, INTO BOTH EYES, FORMULATION: UNKNOWN

REACTIONS (8)
  - Blindness transient [Recovered/Resolved]
  - Eye infection [Unknown]
  - Eye swelling [Unknown]
  - Visual impairment [Unknown]
  - Metamorphopsia [Unknown]
  - Visual brightness [Unknown]
  - Condition aggravated [Unknown]
  - Drug ineffective [Unknown]

NARRATIVE: CASE EVENT DATE: 20210101
